FAERS Safety Report 6045550-X (Version None)
Quarter: 2009Q1

REPORT INFORMATION
  Report Type: 
  Country: None (occurrence: None)
  Receive Date: 20090121
  Receipt Date: 20090120
  Transmission Date: 20090719
  Serious: Yes (Hospitalization)
  Sender: FDA-Public Use
  Company Number: B0555061A

PATIENT
  Age: 91 Year
  Sex: Female

DRUGS (3)
  1. ARIXTRA [Suspect]
     Indication: THROMBOSIS PROPHYLAXIS
     Dosage: 1.5MG PER DAY
     Route: 058
     Dates: start: 20090110, end: 20090113
  2. UNKNOWN DRUG [Suspect]
     Route: 065
  3. UNKNOWN DRUG [Concomitant]
     Route: 065

REACTIONS (1)
  - HAEMATEMESIS [None]
